FAERS Safety Report 7664392 (Version 3)
Quarter: 2012Q4

REPORT INFORMATION
  Report Type: 
  Country: JP (occurrence: US)
  Receive Date: 20101111
  Receipt Date: 20121019
  Transmission Date: 20130627
  Serious: Yes (Other)
  Sender: FDA-Public Use
  Company Number: US-JNJFOC-20100806541

PATIENT
  Age: 61 None
  Sex: Male

DRUGS (4)
  1. LEVAQUIN [Suspect]
     Indication: INFECTION PROPHYLAXIS
     Route: 048
     Dates: start: 2008, end: 2008
  2. LEVAQUIN [Suspect]
     Indication: PROSTATE CANCER
     Route: 048
     Dates: start: 2008, end: 2008
  3. LEVAQUIN [Suspect]
     Indication: BIOPSY PROSTATE
     Route: 048
     Dates: start: 2008, end: 2008
  4. LEVAQUIN [Suspect]
     Indication: INFECTION
     Route: 048
     Dates: start: 2008, end: 2008

REACTIONS (11)
  - Tendon rupture [Unknown]
  - Tendon rupture [Unknown]
  - Tendon rupture [Unknown]
  - Carpal tunnel syndrome [Unknown]
  - Rotator cuff syndrome [Unknown]
  - Neuropathy peripheral [Unknown]
  - Rotator cuff syndrome [Unknown]
  - Arthritis [Unknown]
  - Tenosynovitis [Unknown]
  - Bursitis [Unknown]
  - Tendon rupture [Unknown]
